FAERS Safety Report 26210316 (Version 1)
Quarter: 2025Q4

REPORT INFORMATION
  Report Type: Spontaneous
  Country: JP (occurrence: JP)
  Receive Date: 20251229
  Receipt Date: 20251229
  Transmission Date: 20260118
  Serious: Yes (Death)
  Sender: NOVO NORDISK
  Company Number: JP-NOVOPROD-1590906

PATIENT
  Sex: Male

DRUGS (1)
  1. ESPEROCT [Suspect]
     Active Substance: ANTIHEMOPHILIC FACTOR, HUMAN RECOMBINANT
     Indication: Factor VIII deficiency
     Dosage: 1500 IU/APPROXIMATELY ONCE EVERY THREE MONTHS
     Route: 042
     Dates: start: 20221201

REACTIONS (1)
  - Death [Fatal]
